FAERS Safety Report 8780701 (Version 2)
Quarter: 2012Q4

REPORT INFORMATION
  Report Type: 
  Country: US (occurrence: US)
  Receive Date: 20120913
  Receipt Date: 20121003
  Transmission Date: 20130627
  Serious: No
  Sender: FDA-Public Use
  Company Number: US-VERTEX PHARMACEUTICAL INC.-2012-020604

PATIENT
  Age: 30 None
  Sex: Female
  Weight: 65.76 kg

DRUGS (4)
  1. INCIVEK [Suspect]
     Indication: HEPATITIS C
     Dosage: 750 mg, UNK
     Dates: start: 20120824
  2. PEGASYS [Suspect]
     Indication: HEPATITIS C
     Dosage: 180 UNK, UNK
     Route: 058
     Dates: start: 20120824
  3. COPEGUS [Concomitant]
     Indication: HEPATITIS C
     Dosage: 400 mg in am/600 mg in pm
     Dates: start: 20120824
  4. LISINOPRIL AND HYDROCHLOROTHIAZIDE [Suspect]

REACTIONS (6)
  - Headache [Recovered/Resolved]
  - Dizziness [Not Recovered/Not Resolved]
  - Dyspnoea [Not Recovered/Not Resolved]
  - Fatigue [Not Recovered/Not Resolved]
  - Rash papular [Not Recovered/Not Resolved]
  - Anorectal discomfort [Not Recovered/Not Resolved]
